FAERS Safety Report 7510198-4 (Version None)
Quarter: 2011Q2

REPORT INFORMATION
  Report Type: 
  Country: None (occurrence: None)
  Receive Date: 20110527
  Receipt Date: 20110526
  Transmission Date: 20111010
  Serious: Yes (Death, Hospitalization)
  Sender: FDA-Public Use
  Company Number: CA-B.I. PHARMACEUTICALS,INC./RIDGEFIELD-2011-CN-00668CN

PATIENT
  Age: 74 Year
  Sex: Male

DRUGS (9)
  1. TINZAPARIN [Concomitant]
  2. AMIODARONE HCL [Concomitant]
  3. PLAVIX [Concomitant]
  4. LASIX [Concomitant]
  5. CRESTOR [Concomitant]
  6. CARVEDILOL [Concomitant]
  7. SPIRONOLACTONE [Concomitant]
  8. PRADAXA [Suspect]
     Indication: ATRIAL FIBRILLATION
     Dates: start: 20100801
  9. NITROGLYCERIN [Concomitant]

REACTIONS (1)
  - CARDIAC FAILURE [None]
